FAERS Safety Report 20048578 (Version 1)
Quarter: 2021Q4

REPORT INFORMATION
  Report Type: Spontaneous
  Country: US (occurrence: None)
  Receive Date: 20211109
  Receipt Date: 20211109
  Transmission Date: 20220303
  Serious: No
  Sender: FDA-Public Use
  Company Number: 2021A797451

PATIENT
  Age: 81 Year

DRUGS (1)
  1. PRILOSEC [Suspect]
     Active Substance: OMEPRAZOLE MAGNESIUM
     Indication: Hyperchlorhydria
     Dosage: 1 TABLET, 1 /DAY
     Route: 048

REACTIONS (2)
  - Chest discomfort [Unknown]
  - Product storage error [Unknown]
